FAERS Safety Report 14469372 (Version 5)
Quarter: 2018Q2

REPORT INFORMATION
  Report Type: Spontaneous
  Country: US (occurrence: US)
  Receive Date: 20180131
  Receipt Date: 20180521
  Transmission Date: 20180711
  Serious: Yes (Death, Hospitalization)
  Sender: FDA-Public Use
  Company Number: US-PFIZER INC-2018039237

PATIENT
  Age: 51 Year
  Sex: Male

DRUGS (1)
  1. AMLODIPINE BESILATE [Suspect]
     Active Substance: AMLODIPINE BESYLATE
     Indication: HYPERTENSION
     Dosage: 500 MG, (50 10MG TABLETS)

REACTIONS (4)
  - Circulatory collapse [Fatal]
  - Intentional overdose [Fatal]
  - Toxicity to various agents [Fatal]
  - Acidosis [Fatal]
